FAERS Safety Report 11109444 (Version 1)
Quarter: 2015Q2

REPORT INFORMATION
  Report Type: Spontaneous
  Country: PL (occurrence: PL)
  Receive Date: 20150513
  Receipt Date: 20150513
  Transmission Date: 20150821
  Serious: Yes (Other)
  Sender: FDA-Public Use
  Company Number: PL-TEVA-561739ISR

PATIENT
  Age: 76 Year
  Sex: Male

DRUGS (1)
  1. DIUVER [Suspect]
     Active Substance: TORSEMIDE
     Indication: HYPERTENSION
     Dosage: 2.5 MILLIGRAM DAILY;

REACTIONS (2)
  - Hypoacusis [Unknown]
  - Visual acuity reduced [Unknown]
